FAERS Safety Report 25443219 (Version 1)
Quarter: 2025Q2

REPORT INFORMATION
  Report Type: Spontaneous
  Country: US (occurrence: US)
  Receive Date: 20250617
  Receipt Date: 20250617
  Transmission Date: 20250717
  Serious: Yes (Hospitalization, Other)
  Sender: JUBILANT
  Company Number: None

PATIENT
  Age: 84 Year
  Sex: Female

DRUGS (1)
  1. RISPERIDONE [Suspect]
     Active Substance: RISPERIDONE
     Indication: Schizophrenia
     Dosage: 1 MG, 2 TIMES PER DAY (INCREASED)
     Route: 065

REACTIONS (7)
  - Sinus bradycardia [Unknown]
  - Leukopenia [Unknown]
  - Thrombocytopenia [Unknown]
  - Hypophagia [Unknown]
  - Slow speech [Unknown]
  - Gait disturbance [Unknown]
  - Hypothermia [Recovered/Resolved]
